FAERS Safety Report 4513986-1 (Version None)
Quarter: 2004Q4

REPORT INFORMATION
  Report Type: 
  Country: None (occurrence: None)
  Receive Date: 20041130
  Receipt Date: 20041014
  Transmission Date: 20050328
  Serious: No
  Sender: FDA-Public Use
  Company Number: US-GLAXOSMITHKLINE-A0529926A

PATIENT
  Age: 3 Week
  Sex: Male

DRUGS (2)
  1. WELLBUTRIN XL [Suspect]
     Indication: DEPRESSION
     Dosage: 150MG PER DAY
     Dates: start: 20041012, end: 20041013
  2. PRENATAL VITAMINS [Concomitant]

REACTIONS (1)
  - VOMITING PROJECTILE [None]
